FAERS Safety Report 11936021 (Version 1)
Quarter: 2016Q1

REPORT INFORMATION
  Report Type: Spontaneous
  Country: US (occurrence: US)
  Receive Date: 20160121
  Receipt Date: 20160121
  Transmission Date: 20160526
  Serious: No
  Sender: FDA-Public Use
  Company Number: US-OTSUKA-2015_014069

PATIENT
  Sex: Female

DRUGS (1)
  1. REXULTI [Suspect]
     Active Substance: BREXPIPRAZOLE
     Indication: PSYCHOTIC DISORDER
     Dosage: UNK (OFF OF AN REXULTI FOR 4 DAYS)
     Route: 048

REACTIONS (3)
  - Anger [Unknown]
  - Homicidal ideation [Unknown]
  - Depersonalisation/derealisation disorder [Unknown]
